FAERS Safety Report 7936880-2 (Version None)
Quarter: 2011Q4

REPORT INFORMATION
  Report Type: 
  Country: None (occurrence: None)
  Receive Date: 20111123
  Receipt Date: 20111123
  Transmission Date: 20120403
  Serious: Yes (Other)
  Sender: FDA-Public Use
  Company Number: None

PATIENT
  Age: 32 Year
  Sex: Female
  Weight: 92.986 kg

DRUGS (4)
  1. LOVENOX [Concomitant]
  2. OGESTREL 0.5/50-28 [Suspect]
     Indication: MIGRAINE
     Dosage: ONE
     Route: 048
     Dates: start: 20110501, end: 20111001
  3. OGESTREL 0.5/50-28 [Suspect]
     Indication: MENSTRUAL CYCLE MANAGEMENT
     Dosage: ONE
     Route: 048
     Dates: start: 20110501, end: 20111001
  4. COUMADIN [Concomitant]

REACTIONS (1)
  - DEEP VEIN THROMBOSIS [None]
